FAERS Safety Report 7317328-8 (Version None)
Quarter: 2011Q1

REPORT INFORMATION
  Report Type: 
  Country: None (occurrence: None)
  Receive Date: 20110226
  Receipt Date: 20101026
  Transmission Date: 20110831
  Serious: No
  Sender: FDA-Public Use
  Company Number: US-ALLERGAN-1013777US

PATIENT

DRUGS (3)
  1. BOTOX COSMETIC [Suspect]
     Indication: SKIN WRINKLING
     Dosage: UNK
     Dates: start: 20101005, end: 20101005
  2. BOTOX COSMETIC [Suspect]
     Dosage: UNK
     Dates: start: 20101019, end: 20101019
  3. BOTOX COSMETIC [Suspect]
     Dosage: UNK
     Dates: start: 20101015, end: 20101015

REACTIONS (1)
  - EYELID PTOSIS [None]
